FAERS Safety Report 5595161-5 (Version None)
Quarter: 2008Q1

REPORT INFORMATION
  Report Type: 
  Country: None (occurrence: None)
  Receive Date: 20080117
  Receipt Date: 20080102
  Transmission Date: 20080703
  Serious: Yes (Other)
  Sender: FDA-Public Use
  Company Number: US-GILEAD-2008-0014956

PATIENT
  Age: 40 Year
  Sex: Male

DRUGS (3)
  1. TRUVADA [Suspect]
     Indication: HIV INFECTION
  2. REYATAZ [Concomitant]
     Indication: HIV INFECTION
  3. RITONAVIR [Concomitant]
     Indication: HIV INFECTION

REACTIONS (1)
  - OSTEONECROSIS [None]
